FAERS Safety Report 22269645 (Version 1)
Quarter: 2023Q2

REPORT INFORMATION
  Report Type: Spontaneous
  Country: US (occurrence: US)
  Receive Date: 20230501
  Receipt Date: 20230501
  Transmission Date: 20230722
  Serious: Yes (Other)
  Sender: FDA-Public Use
  Company Number: US-PFIZER INC-PV202300075909

PATIENT
  Age: 70 Year
  Sex: Male

DRUGS (1)
  1. TALZENNA [Suspect]
     Active Substance: TALAZOPARIB TOSYLATE
     Indication: Prostate cancer stage IV
     Dosage: 1 MG

REACTIONS (2)
  - Spinal operation [Unknown]
  - Off label use [Unknown]
